FAERS Safety Report 13259554 (Version 1)
Quarter: 2017Q1

REPORT INFORMATION
  Report Type: Spontaneous
  Country: US (occurrence: US)
  Receive Date: 20170222
  Receipt Date: 20170222
  Transmission Date: 20170428
  Serious: No
  Sender: FDA-Public Use
  Company Number: US-B.I. PHARMACEUTICALS,INC./RIDGEFIELD-2017-BI-008812

PATIENT
  Age: 77 Year
  Sex: Female

DRUGS (11)
  1. ALLOPURINAL [Concomitant]
     Indication: GOUT
     Dosage: 1 DAILY;  FORM STRENGTH: 100 MG; FORMULATION: TABLET
     Route: 048
  2. VICODIN [Concomitant]
     Active Substance: ACETAMINOPHEN\HYDROCODONE BITARTRATE
     Indication: PRODUCT USED FOR UNKNOWN INDICATION
     Route: 065
  3. COMBIVENT [Suspect]
     Active Substance: ALBUTEROL SULFATE\IPRATROPIUM BROMIDE
     Indication: ASTHMA
     Dosage: 1 PUFF TWICE A DAY;  FORM STRENGTH: 18 MCG / 103 MCG; FORMULATION: INHALATION AEROSOL? ADMINISTRATIO
     Route: 055
  4. SPIRIVA [Concomitant]
     Active Substance: TIOTROPIUM BROMIDE MONOHYDRATE
     Indication: PRODUCT USED FOR UNKNOWN INDICATION
     Route: 065
  5. SYMBICORT [Concomitant]
     Active Substance: BUDESONIDE\FORMOTEROL FUMARATE DIHYDRATE
     Indication: PRODUCT USED FOR UNKNOWN INDICATION
     Dosage: 1 PUFF TWICE A DAY;
     Route: 065
  6. HYDROCHLOROTHIAZIDE. [Concomitant]
     Active Substance: HYDROCHLOROTHIAZIDE
     Indication: PRODUCT USED FOR UNKNOWN INDICATION
     Dosage: 1 TABLET DAILY;  FORM STRENGTH: 25MG; FORMULATION: TABLET
     Route: 048
  7. VITMAN B [Concomitant]
     Indication: PRODUCT USED FOR UNKNOWN INDICATION
     Dosage: 2 TABLETS ONCE A DAY;
  8. OMEPRAZOLE. [Concomitant]
     Active Substance: OMEPRAZOLE
     Indication: PRODUCT USED FOR UNKNOWN INDICATION
     Dosage: 1 CAPSULE DAILY;
     Route: 065
  9. DIAZEPAM. [Concomitant]
     Active Substance: DIAZEPAM
     Indication: PRODUCT USED FOR UNKNOWN INDICATION
     Dosage: 1 TABLET AT BEDTIME;  FORM STRENGTH: 2MG; FORMULATION: TABLET
     Route: 048
  10. COMBIVENT [Suspect]
     Active Substance: ALBUTEROL SULFATE\IPRATROPIUM BROMIDE
     Dosage: MORE THAN 6 INHALATIONS AS NEEDED;  FORM STRENGTH: 18 MCG / 103 MCG; FORMULATION: INHALATION AEROSOL
     Route: 055
  11. LOVASTATIN. [Concomitant]
     Active Substance: LOVASTATIN
     Indication: PRODUCT USED FOR UNKNOWN INDICATION
     Dosage: 1 TABLET DAILY;  FORM STRENGTH: 10MG; FORMULATION: TABLET
     Route: 048

REACTIONS (9)
  - Anxiety [Not Recovered/Not Resolved]
  - Fall [Recovered/Resolved]
  - Intervertebral disc disorder [Not Recovered/Not Resolved]
  - Haemorrhoidal haemorrhage [Recovered/Resolved]
  - Off label use [Unknown]
  - Constipation [Recovered/Resolved]
  - Stress [Not Recovered/Not Resolved]
  - Incorrect dose administered [Recovered/Resolved]
  - Bankruptcy [Not Recovered/Not Resolved]

NARRATIVE: CASE EVENT DATE: 2009
